FAERS Safety Report 10021288 (Version 3)
Quarter: 2014Q2

REPORT INFORMATION
  Report Type: Spontaneous
  Country: US (occurrence: US)
  Receive Date: 20140319
  Receipt Date: 20140427
  Transmission Date: 20141212
  Serious: Yes (Hospitalization, Other)
  Sender: FDA-Public Use
  Company Number: PHEH2014US005044

PATIENT
  Sex: Female
  Weight: 20 kg

DRUGS (15)
  1. AFINITOR [Suspect]
     Indication: ASTROCYTOMA, LOW GRADE
     Dosage: 5 MG, DAY
     Route: 048
  2. TYLENOL [Concomitant]
     Dosage: 250 MG
     Route: 048
  3. DOCUSATE [Concomitant]
     Dosage: 5 ML, BID
  4. IMIPRAMINE [Concomitant]
     Dosage: 30 MG
  5. TOFRANIL [Concomitant]
     Dosage: 10 MG
     Route: 048
  6. LEUPROLIDE [Concomitant]
     Dosage: 30 MG
  7. KEPRA [Concomitant]
     Dosage: UNK
     Route: 042
  8. SODIUM CHLORIDE [Concomitant]
     Dosage: 3 ML, DAY
     Route: 048
  9. RISPERIDONE [Concomitant]
     Dosage: UNK
  10. RISPERIDONE [Concomitant]
     Dosage: UNK
  11. PHENERGAN [Concomitant]
     Dosage: 5 ML
  12. MILK OF MAGNESIA [Concomitant]
     Dosage: 5 MG, BID
  13. METHADONE [Concomitant]
  14. VIGABATRIN [Concomitant]
  15. ATIVAN [Concomitant]
     Dosage: 0.75 ML

REACTIONS (3)
  - Abdominal distension [Recovering/Resolving]
  - Septic shock [Recovering/Resolving]
  - Ileus [Unknown]
